FAERS Safety Report 24289721 (Version 1)
Quarter: 2024Q3

REPORT INFORMATION
  Report Type: Spontaneous
  Country: GB (occurrence: GB)
  Receive Date: 20240906
  Receipt Date: 20240906
  Transmission Date: 20241017
  Serious: No
  Sender: ALKEM
  Company Number: None

PATIENT
  Age: 62 Year
  Sex: Female

DRUGS (1)
  1. PREGABALIN [Suspect]
     Active Substance: PREGABALIN
     Indication: Arthralgia
     Dosage: 25 MILLIGRAM, BID (CAPSULE, TWICE A DAY)
     Route: 065
     Dates: start: 20230714, end: 20230801

REACTIONS (1)
  - Peripheral swelling [Recovered/Resolved]
